FAERS Safety Report 5415018-X (Version None)
Quarter: 2007Q3

REPORT INFORMATION
  Report Type: 
  Country: None (occurrence: None)
  Receive Date: 20070814
  Receipt Date: 20070814
  Transmission Date: 20080115
  Serious: Yes (Other)
  Sender: FDA-Public Use
  Company Number: None

PATIENT
  Age: 54 Year
  Sex: Female
  Weight: 81.6475 kg

DRUGS (2)
  1. AMBIEN [Suspect]
     Indication: INSOMNIA
     Dosage: 5MG OR 10MG NIGHTLY PO
     Route: 048
     Dates: start: 19970904, end: 20050404
  2. AMBIEN [Suspect]
     Indication: PAIN
     Dosage: 5MG OR 10MG NIGHTLY PO
     Route: 048
     Dates: start: 19970904, end: 20050404

REACTIONS (2)
  - ABNORMAL SLEEP-RELATED EVENT [None]
  - SOMNAMBULISM [None]
